FAERS Safety Report 19925887 (Version 1)
Quarter: 2021Q4

REPORT INFORMATION
  Report Type: Spontaneous
  Country: CN (occurrence: CN)
  Receive Date: 20211007
  Receipt Date: 20211007
  Transmission Date: 20220303
  Serious: Yes (Other)
  Sender: FDA-Public Use
  Company Number: CN-SPECGX-T202102240

PATIENT
  Age: 28 Year
  Sex: Female
  Weight: 73 kg

DRUGS (3)
  1. ACETAMINOPHEN\OXYCODONE HYDROCHLORIDE [Suspect]
     Active Substance: ACETAMINOPHEN\OXYCODONE HYDROCHLORIDE
     Indication: Analgesic therapy
     Dosage: 1 DOSAGE FORM, TID
     Route: 048
     Dates: start: 20210916, end: 20210917
  2. ORNIDAZOLE [Suspect]
     Active Substance: ORNIDAZOLE
     Indication: Anti-infective therapy
     Dosage: 0.5 GRAM, BID
     Route: 041
     Dates: start: 20210916, end: 20210917
  3. CEFOXITIN SODIUM [Suspect]
     Active Substance: CEFOXITIN SODIUM
     Indication: Anti-infective therapy
     Dosage: 2 GRAM, BID
     Route: 041
     Dates: start: 20210916, end: 20210917

REACTIONS (3)
  - Eyelid oedema [Recovered/Resolved]
  - Oropharyngeal discomfort [Recovered/Resolved]
  - Pruritus [Recovered/Resolved]

NARRATIVE: CASE EVENT DATE: 20210917
